FAERS Safety Report 21818016 (Version 1)
Quarter: 2023Q1

REPORT INFORMATION
  Report Type: Spontaneous
  Country: US (occurrence: US)
  Receive Date: 20230104
  Receipt Date: 20230104
  Transmission Date: 20230417
  Serious: Yes (Other)
  Sender: FDA-Public Use
  Company Number: US-COOPERSURGICAL, INC.-US-2022CPS001936

PATIENT
  Age: 27 Year
  Sex: Female
  Weight: 81.633 kg

DRUGS (1)
  1. PARAGARD T 380A [Suspect]
     Active Substance: COPPER
     Indication: Product used for unknown indication
     Dosage: UNK
     Route: 015
     Dates: start: 20180116

REACTIONS (9)
  - Pelvic inflammatory disease [Unknown]
  - Foreign body in reproductive tract [Not Recovered/Not Resolved]
  - Abdominal pain lower [Recovered/Resolved]
  - Tenderness [Recovered/Resolved]
  - Device material issue [Not Recovered/Not Resolved]
  - Device issue [Unknown]
  - Dysmenorrhoea [Unknown]
  - Heavy menstrual bleeding [Unknown]
  - Pain in extremity [Recovered/Resolved]

NARRATIVE: CASE EVENT DATE: 20180116
